FAERS Safety Report 7391969-4 (Version None)
Quarter: 2011Q2

REPORT INFORMATION
  Report Type: 
  Country: None (occurrence: None)
  Receive Date: 20110404
  Receipt Date: 20110321
  Transmission Date: 20111010
  Serious: Yes (Death)
  Sender: FDA-Public Use
  Company Number: JP-WATSON-2011-04168

PATIENT
  Age: 64 Year
  Sex: Male

DRUGS (1)
  1. PREDNISOLONE [Suspect]
     Indication: PANCYTOPENIA
     Dosage: 10 MG, DAILY

REACTIONS (3)
  - MULTIPLE MYELOMA [None]
  - CONDITION AGGRAVATED [None]
  - PANCYTOPENIA [None]
